FAERS Safety Report 21336558 (Version 1)
Quarter: 2022Q3

REPORT INFORMATION
  Report Type: Spontaneous
  Country: None (occurrence: ZA)
  Receive Date: 20220915
  Receipt Date: 20220915
  Transmission Date: 20221027
  Serious: Yes (Death)
  Sender: FDA-Public Use
  Company Number: ZA-Knight Therapeutics (USA) Inc.-2132874

PATIENT
  Age: 3 Year

DRUGS (5)
  1. IMPAVIDO [Suspect]
     Active Substance: MILTEFOSINE
     Route: 048
  2. FLUCYTOSINE [Concomitant]
     Active Substance: FLUCYTOSINE
     Route: 048
  3. SULFAMETHOXAZOLE\TRIMETHOPRIM [Concomitant]
     Active Substance: SULFAMETHOXAZOLE\TRIMETHOPRIM
     Route: 042
  4. CLARITHROMYCIN [Concomitant]
     Active Substance: CLARITHROMYCIN
     Route: 042
  5. PREDNISONE [Concomitant]
     Active Substance: PREDNISONE

REACTIONS (2)
  - Drug ineffective for unapproved indication [Fatal]
  - Off label use [Unknown]
